FAERS Safety Report 5012214-0 (Version None)
Quarter: 2006Q2

REPORT INFORMATION
  Report Type: 
  Country: None (occurrence: None)
  Receive Date: 20060410
  Receipt Date: 20060120
  Transmission Date: 20061013
  Serious: Yes (Hospitalization)
  Sender: FDA-Public Use
  Company Number: 06P-163-0322933-00

PATIENT
  Age: 25 Year
  Sex: Female
  Weight: 63.5036 kg

DRUGS (1)
  1. DEPAKOTE [Suspect]
     Indication: CONVULSION
     Dosage: 250 MG, 3  1/2 TABS DAILY, PER ORAL
     Route: 048
     Dates: start: 19940101, end: 19960101

REACTIONS (3)
  - AMNESIA [None]
  - CONVULSION [None]
  - PANCREATITIS [None]
